FAERS Safety Report 5794914-8 (Version None)
Quarter: 2008Q2

REPORT INFORMATION
  Report Type: 
  Country: None (occurrence: None)
  Receive Date: 20080626
  Receipt Date: 20080612
  Transmission Date: 20081010
  Serious: Yes (Hospitalization)
  Sender: FDA-Public Use
  Company Number: JPKYO-S-20080048

PATIENT
  Age: 64 Year
  Sex: Female

DRUGS (1)
  1. NAVELBINE [Suspect]
     Indication: BREAST CANCER
     Dosage: 40 MG INFUSION IV
     Route: 042
     Dates: start: 20080508, end: 20080508

REACTIONS (4)
  - ASTHMA [None]
  - HYPERHIDROSIS [None]
  - HYPERSENSITIVITY [None]
  - PULMONARY OEDEMA [None]
